FAERS Safety Report 10450268 (Version 1)
Quarter: 2014Q3

REPORT INFORMATION
  Report Type: Spontaneous
  Country: GB (occurrence: GB)
  Receive Date: 20140912
  Receipt Date: 20140912
  Transmission Date: 20150326
  Serious: Yes (Hospitalization, Other)
  Sender: FDA-Public Use
  Company Number: GB-PFIZER INC-2014251182

PATIENT
  Age: 78 Year
  Sex: Female

DRUGS (15)
  1. TEMAZEPAM. [Concomitant]
     Active Substance: TEMAZEPAM
     Dosage: 20 MG, 1X/DAY
  2. GTN [Concomitant]
     Active Substance: NITROGLYCERIN
     Dosage: UNK
  3. FUROSEMIDE. [Suspect]
     Active Substance: FUROSEMIDE
     Dosage: 20 MG, 1X/DAY
     Route: 048
     Dates: end: 20110206
  4. MST CONTINUS [Concomitant]
     Active Substance: MORPHINE SULFATE
     Dosage: 10 MG, 2X/DAY
  5. QUININE SULPHATE [Concomitant]
     Active Substance: QUININE SULFATE
     Dosage: 300 MG, 1X/DAY
  6. SERETIDE [Concomitant]
     Active Substance: FLUTICASONE FUROATE\SALMETEROL XINAFOATE
     Dosage: 2 DF, 2X/DAY
  7. FERROUS FUMARATE [Concomitant]
     Active Substance: FERROUS FUMARATE
     Dosage: 210 MG, 2X/DAY
  8. MST CONTINUS [Concomitant]
     Active Substance: MORPHINE SULFATE
     Dosage: 20 MG, 2X/DAY
  9. AMLODIPINE [Concomitant]
     Active Substance: AMLODIPINE BESYLATE
     Dosage: 5 MG, 1X/DAY
  10. ASPIRIN. [Concomitant]
     Active Substance: ASPIRIN
     Dosage: 75 MG, 1X/DAY
  11. RAMIPRIL. [Suspect]
     Active Substance: RAMIPRIL
     Dosage: 1.25 MG, 1X/DAY
     Route: 048
     Dates: end: 20110206
  12. ATORVASTATIN [Concomitant]
     Active Substance: ATORVASTATIN
     Dosage: 40 MG, 1X/DAY
  13. ISOSORBIDE MONONITRATE. [Concomitant]
     Active Substance: ISOSORBIDE MONONITRATE
     Dosage: 10 MG, 2X/DAY
  14. OMEPRAZOLE. [Concomitant]
     Active Substance: OMEPRAZOLE
     Dosage: 40 MG, 1X/DAY
  15. RANOLAZINE [Concomitant]
     Active Substance: RANOLAZINE
     Dosage: 375 MG, 2X/DAY

REACTIONS (8)
  - Decreased appetite [Recovered/Resolved]
  - Lower respiratory tract infection [Recovered/Resolved]
  - Dehydration [Unknown]
  - Abdominal pain [Recovered/Resolved]
  - Malaise [Recovered/Resolved]
  - Dyspnoea [Recovered/Resolved]
  - Cough [Unknown]
  - Renal impairment [Recovered/Resolved]

NARRATIVE: CASE EVENT DATE: 20110206
